FAERS Safety Report 5486454-0 (Version None)
Quarter: 2007Q4

REPORT INFORMATION
  Report Type: 
  Country: None (occurrence: None)
  Receive Date: 20071016
  Receipt Date: 20071012
  Transmission Date: 20080405
  Serious: Yes (Other)
  Sender: FDA-Public Use
  Company Number: A0687574A

PATIENT
  Age: 63 Year
  Sex: Female

DRUGS (9)
  1. WELLBUTRIN XL [Suspect]
     Indication: DRUG USE FOR UNKNOWN INDICATION
     Dosage: 150MG PER DAY
     Route: 048
  2. NAPROXEN [Concomitant]
  3. ALPRAZOLAM [Concomitant]
  4. LIPITOR [Concomitant]
  5. DILTIAZEM [Concomitant]
  6. PREMARIN [Concomitant]
  7. UNSPECIFIED MEDICATION [Concomitant]
  8. TRIAMTEREEN [Concomitant]
  9. CEPHALEXIN [Concomitant]

REACTIONS (1)
  - HOMICIDE [None]
